FAERS Safety Report 5148151-0 (Version None)
Quarter: 2006Q4

REPORT INFORMATION
  Report Type: 
  Country: None (occurrence: None)
  Receive Date: 20061110
  Receipt Date: 20061101
  Transmission Date: 20070319
  Serious: Yes (Disabling, Other)
  Sender: FDA-Public Use
  Company Number: 2006AP05214

PATIENT
  Age: 19425 Day
  Sex: Female

DRUGS (1)
  1. ARIMIDEX [Suspect]
     Indication: PROPHYLAXIS
     Route: 048
     Dates: start: 20060524

REACTIONS (5)
  - AMNESIA [None]
  - ARTHRALGIA [None]
  - BONE PAIN [None]
  - HEADACHE [None]
  - NAUSEA [None]
